FAERS Safety Report 17641026 (Version 1)
Quarter: 2020Q2

REPORT INFORMATION
  Report Type: Spontaneous
  Country: IE (occurrence: IE)
  Receive Date: 20200407
  Receipt Date: 20200407
  Transmission Date: 20200713
  Serious: Yes (Hospitalization, Other)
  Sender: FDA-Public Use
  Company Number: IE-JNJFOC-20200313217

PATIENT
  Age: 76 Year
  Sex: Male

DRUGS (5)
  1. PREDNISOLONE. [Suspect]
     Active Substance: PREDNISOLONE
     Dosage: 8 TABLETS DAILY FOR 3 DAYS, THEN REDUCED TO 7 TABLETS DAILY FOR 3 DAYS ETC. REDUCING DOSE EVERY 3
     Route: 048
     Dates: start: 201911
  2. METOCOR [Concomitant]
     Active Substance: METOPROLOL TARTRATE
     Indication: ATRIAL FIBRILLATION
     Route: 048
  3. XTANDI [Concomitant]
     Active Substance: ENZALUTAMIDE
     Route: 065
     Dates: start: 2017, end: 2019
  4. ZYTIGA [Suspect]
     Active Substance: ABIRATERONE ACETATE
     Indication: PROSTATE CANCER STAGE IV
     Route: 048
     Dates: start: 20190426
  5. PREDNISOLONE. [Suspect]
     Active Substance: PREDNISOLONE
     Indication: PRODUCT USED FOR UNKNOWN INDICATION
     Dosage: INITIAL DOSE (END OF APR 2019) 2 TABLETS DAILY
     Route: 048
     Dates: start: 201904

REACTIONS (9)
  - Stent placement [Not Recovered/Not Resolved]
  - Increased appetite [Not Recovered/Not Resolved]
  - Mood swings [Not Recovered/Not Resolved]
  - Abnormal behaviour [Not Recovered/Not Resolved]
  - Weight increased [Not Recovered/Not Resolved]
  - Obsessive thoughts [Not Recovered/Not Resolved]
  - Hunger [Not Recovered/Not Resolved]
  - Dyspnoea [Not Recovered/Not Resolved]
  - Cardiac operation [Not Recovered/Not Resolved]

NARRATIVE: CASE EVENT DATE: 20200225
